FAERS Safety Report 10925033 (Version 2)
Quarter: 2015Q2

REPORT INFORMATION
  Report Type: Spontaneous
  Country: US (occurrence: US)
  Receive Date: 20150318
  Receipt Date: 20150524
  Transmission Date: 20150821
  Serious: No
  Sender: FDA-Public Use
  Company Number: US-JNJFOC-20120601324

PATIENT
  Age: 61 Year
  Sex: Male

DRUGS (3)
  1. NIZORAL A-D [Suspect]
     Active Substance: KETOCONAZOLE
     Indication: HAIR COLOUR CHANGES
     Route: 061
     Dates: start: 2012
  2. NIZORAL A-D [Suspect]
     Active Substance: KETOCONAZOLE
     Indication: HAIR COLOUR CHANGES
     Route: 061
     Dates: start: 20110801, end: 20120515
  3. UNKNOWN MEDICATION [Concomitant]
     Active Substance: UNSPECIFIED INGREDIENT
     Route: 065

REACTIONS (9)
  - Hair colour changes [Unknown]
  - Product use issue [Unknown]
  - Erythema [Recovered/Resolved]
  - Inappropriate schedule of drug administration [Unknown]
  - Drug administered at inappropriate site [Unknown]
  - Hair disorder [Recovered/Resolved]
  - Skin exfoliation [Recovered/Resolved]
  - Product quality issue [Unknown]
  - Product odour abnormal [Unknown]

NARRATIVE: CASE EVENT DATE: 20120401
